FAERS Safety Report 14526901 (Version 1)
Quarter: 2018Q1

REPORT INFORMATION
  Report Type: Spontaneous
  Country: US (occurrence: US)
  Receive Date: 20180212
  Receipt Date: 20180212
  Transmission Date: 20180509
  Serious: Yes (Disabling)
  Sender: FDA-Public Use
  Company Number: None

PATIENT
  Sex: Female
  Weight: 45 kg

DRUGS (9)
  1. GABAPENTIN. [Concomitant]
     Active Substance: GABAPENTIN
  2. MULTI-VITAMIN [Concomitant]
     Active Substance: .ALPHA.-TOCOPHEROL ACETATE, DL-\ASCORBIC ACID\CYANOCOBALAMIN\FLUORIDE ION\FOLIC ACID\NIACIN\PYRIDOXINE\RIBOFLAVIN\THIAMINE\VITAMIN A\VITAMIN D
  3. ASPIRIN. [Concomitant]
     Active Substance: ASPIRIN
  4. PROBIOTIC [Concomitant]
     Active Substance: PROBIOTICS NOS
  5. SINGULAIR [Concomitant]
     Active Substance: MONTELUKAST SODIUM
  6. CALCIUM [Concomitant]
     Active Substance: CALCIUM
  7. PROLIA [Suspect]
     Active Substance: DENOSUMAB
     Indication: OSTEOPOROSIS
     Route: 058
     Dates: start: 20170824, end: 20170824
  8. CARVEDILOL. [Concomitant]
     Active Substance: CARVEDILOL
  9. COQ10 [Concomitant]
     Active Substance: UBIDECARENONE

REACTIONS (7)
  - Dyspnoea [None]
  - Epistaxis [None]
  - Rash [None]
  - Gingival ulceration [None]
  - Oropharyngeal pain [None]
  - Nasal congestion [None]
  - Ear pain [None]

NARRATIVE: CASE EVENT DATE: 20171003
